FAERS Safety Report 6585075-6 (Version None)
Quarter: 2010Q1

REPORT INFORMATION
  Report Type: 
  Country: None (occurrence: None)
  Receive Date: 20100217
  Receipt Date: 20100204
  Transmission Date: 20100710
  Serious: Yes (Hospitalization)
  Sender: FDA-Public Use
  Company Number: US-ROCHE-677634

PATIENT

DRUGS (11)
  1. CAPECITABINE [Suspect]
     Route: 065
  2. ERLOTINIB [Suspect]
     Dosage: FREQUENCY: ONCE DAILY FOR 4 MONTHS LAST DOSE PRIOR TO SAE: 23 NOV 2009
     Route: 065
     Dates: start: 20091021
  3. DILAUDID [Concomitant]
     Indication: PAIN
     Dosage: FREQUENCY: PRN
     Dates: start: 20090501
  4. PANCREASE [Concomitant]
     Dosage: FREQUENCY: TID WITH MEALS
     Dates: start: 20090501
  5. COLACE [Concomitant]
     Indication: CONSTIPATION
     Dosage: FREQUENCY: BID-PRN
     Dates: start: 20090501
  6. PROTONIX [Concomitant]
     Dates: start: 20090501
  7. LISINOPRIL [Concomitant]
     Indication: HYPERTENSION
     Dosage: START DATE:  X 30 YEARS
  8. SENNA [Concomitant]
     Indication: CONSTIPATION
     Dosage: FREQUENCY: PRN
     Dates: start: 20090501
  9. NIFEDIPINE [Concomitant]
     Indication: HYPERTENSION
     Dosage: DRUG: NIFEDIPINE XL (ADALAT) START DATE: ~10-15 YEARS
  10. COMPAZINE [Concomitant]
     Indication: NAUSEA
     Dosage: FREQUENCY: PRN
     Dates: start: 20090907
  11. POTASSIUM [Concomitant]
     Dosage: FREQUENCY: QD-D BID DRUG: POTASSIUM GRANULES
     Dates: start: 20090701

REACTIONS (2)
  - HYPOTENSION [None]
  - SYNCOPE [None]
